FAERS Safety Report 18501825 (Version 1)
Quarter: 2020Q4

REPORT INFORMATION
  Report Type: Not Available
  Country: None (occurrence: None)
  Receive Date: 20201113
  Receipt Date: 20201113
  Transmission Date: 20210114
  Serious: No
  Sender: FDA-Public Use
  Company Number: US-AKORN-154925

PATIENT
  Sex: Female

DRUGS (1)
  1. AZASITE [Suspect]
     Active Substance: AZITHROMYCIN MONOHYDRATE

REACTIONS (3)
  - Pinguecula [Not Recovered/Not Resolved]
  - Medication error [Recovered/Resolved]
  - Off label use [Recovered/Resolved]
